FAERS Safety Report 20751999 (Version 3)
Quarter: 2022Q2

REPORT INFORMATION
  Report Type: Report from Study
  Country: CN (occurrence: CN)
  Receive Date: 20220426
  Receipt Date: 20220603
  Transmission Date: 20220721
  Serious: Yes (Hospitalization)
  Sender: FDA-Public Use
  Company Number: CN-JNJFOC-20220401421

PATIENT
  Age: 50 Year
  Sex: Female
  Weight: 54 kg

DRUGS (13)
  1. AMIVANTAMAB [Suspect]
     Active Substance: AMIVANTAMAB
     Indication: Non-small cell lung cancer metastatic
     Route: 042
     Dates: start: 20211209, end: 20220315
  2. CALCIUM CARBONATE,VITAMIN D3 AND ELEMENTS TABLETS(4) [Concomitant]
     Indication: Mineral supplementation
     Route: 048
     Dates: start: 20211123
  3. TRIAMCINOLONE ACETONIDE AND ECONAZOLE NITRATE CREAM [Concomitant]
     Indication: Prophylaxis
     Route: 061
     Dates: start: 20211216
  4. ERGOCALCIFEROL [Concomitant]
     Active Substance: ERGOCALCIFEROL
     Indication: Mineral supplementation
     Route: 048
     Dates: start: 20220107
  5. DESONIDE [Concomitant]
     Active Substance: DESONIDE
     Indication: Rash
     Route: 061
     Dates: start: 20220109
  6. METFORMIN [Concomitant]
     Active Substance: METFORMIN HYDROCHLORIDE
     Indication: Glucose tolerance impaired
     Route: 048
     Dates: start: 20220219
  7. DUPHALAC [Concomitant]
     Active Substance: LACTULOSE
     Indication: Haemorrhoids
     Route: 048
     Dates: start: 20220420
  8. DIOSMIN [Concomitant]
     Active Substance: DIOSMIN
     Indication: Haemorrhoids
     Route: 048
     Dates: start: 20220426
  9. PUJI HEMORRHOID SUPPOSITORY(BEAR BILE POWDER) [Concomitant]
     Indication: Haemorrhoids
     Route: 054
     Dates: start: 20220426
  10. CHLORTETRACYCLINE HYDROCHLORIDE [Concomitant]
     Active Substance: CHLORTETRACYCLINE HYDROCHLORIDE
     Indication: Haemorrhoids
     Route: 061
     Dates: start: 20220426
  11. TRADITIONAL CHINESE MEDICINE (TCM) DECOCTION(SOPHORA) [Concomitant]
     Indication: Haemorrhoids
     Route: 054
     Dates: start: 20220426
  12. COMPOUND POLYMYXIN B [Concomitant]
     Indication: Haemorrhoids
     Route: 061
     Dates: start: 20220502, end: 20220510
  13. FRUCTUS SOPHORAE PILL [Concomitant]
     Indication: Haemorrhoids
     Route: 048
     Dates: start: 20220512

REACTIONS (2)
  - Pulmonary embolism [Recovered/Resolved]
  - Venous thrombosis limb [Not Recovered/Not Resolved]

NARRATIVE: CASE EVENT DATE: 20220330
